FAERS Safety Report 6806614-3 (Version None)
Quarter: 2010Q2

REPORT INFORMATION
  Report Type: 
  Country: None (occurrence: None)
  Receive Date: 20100629
  Receipt Date: 20080325
  Transmission Date: 20101027
  Serious: No
  Sender: FDA-Public Use
  Company Number: US-PFIZER INC-2008028157

PATIENT
  Sex: Female
  Weight: 63.5 kg

DRUGS (5)
  1. TIKOSYN [Suspect]
     Indication: ATRIAL FIBRILLATION
     Dates: start: 20080204
  2. WARFARIN SODIUM [Concomitant]
  3. SPIRONOLACTONE [Concomitant]
  4. LISINOPRIL [Concomitant]
  5. COREG [Concomitant]

REACTIONS (2)
  - COUGH [None]
  - NASOPHARYNGITIS [None]
